FAERS Safety Report 5918158-1 (Version None)
Quarter: 2008Q4

REPORT INFORMATION
  Report Type: 
  Country: None (occurrence: None)
  Receive Date: 20081014
  Receipt Date: 20081008
  Transmission Date: 20090506
  Serious: No
  Sender: FDA-Public Use
  Company Number: US-B.I. PHARMACEUTICALS,INC./RIDGEFIELD-2008-BP-15613BP

PATIENT
  Age: 53 Year
  Sex: Female

DRUGS (12)
  1. MICARDIS [Suspect]
     Indication: HYPERTENSION
     Dosage: 80MG
     Route: 048
     Dates: start: 20071001
  2. ASPIRIN [Concomitant]
  3. PRILOSEC [Concomitant]
     Dosage: 20MG
  4. DILTIAZEM HCL [Concomitant]
     Dosage: 300MG
  5. PLAVIX [Concomitant]
     Dosage: 75MG
  6. SYNTHROID [Concomitant]
     Dosage: 715MCG
  7. LIPITOR [Concomitant]
     Dosage: 40MG
  8. MOTRIN [Concomitant]
     Dosage: 800MG
  9. LOVAZA [Concomitant]
     Dosage: 4000MG
  10. PRESTIG [Concomitant]
  11. LYRICA [Concomitant]
  12. JANUMAT [Concomitant]

REACTIONS (2)
  - RASH [None]
  - SOMNOLENCE [None]
